FAERS Safety Report 4752362-3 (Version None)
Quarter: 2005Q3

REPORT INFORMATION
  Report Type: 
  Country: None (occurrence: None)
  Receive Date: 20050825
  Receipt Date: 20050816
  Transmission Date: 20060218
  Serious: Yes (Hospitalization)
  Sender: FDA-Public Use
  Company Number: US-JNJFOC-20050804286

PATIENT
  Sex: Male

DRUGS (3)
  1. DURAGESIC-100 [Suspect]
     Route: 062
     Dates: start: 19990101
  2. MORPHINE [Concomitant]
     Route: 048
  3. LANTUS [Concomitant]
     Dosage: 90 UNITS DAILY (55 UNITS AM AND 35 UNITS PM)
     Route: 050
     Dates: start: 20010101

REACTIONS (4)
  - ARNOLD-CHIARI MALFORMATION [None]
  - CERVICAL VERTEBRAL FRACTURE [None]
  - DIABETES MELLITUS [None]
  - FALL [None]
